FAERS Safety Report 9413344 (Version 1)
Quarter: 2013Q3

REPORT INFORMATION
  Report Type: Spontaneous
  Country: CA (occurrence: CA)
  Receive Date: 20130722
  Receipt Date: 20130722
  Transmission Date: 20140515
  Serious: Yes (Other)
  Sender: FDA-Public Use
  Company Number: CA-ROCHE-1251410

PATIENT
  Age: 54 Year
  Sex: Female

DRUGS (3)
  1. OMALIZUMAB [Suspect]
     Indication: ASTHMA
     Route: 058
     Dates: end: 20070612
  2. OMALIZUMAB [Suspect]
     Route: 058
     Dates: start: 20090105
  3. OMALIZUMAB [Suspect]
     Route: 065
     Dates: start: 20130710

REACTIONS (3)
  - Bronchospasm [Unknown]
  - Gastroenteritis [Unknown]
  - Blood pressure increased [Unknown]
